FAERS Safety Report 10446005 (Version 4)
Quarter: 2014Q4

REPORT INFORMATION
  Report Type: Spontaneous
  Country: AU (occurrence: AU)
  Receive Date: 20140910
  Receipt Date: 20141112
  Transmission Date: 20150528
  Serious: Yes (Other)
  Sender: FDA-Public Use
  Company Number: AU-BAXTER-2014BAX053178

PATIENT
  Sex: Male

DRUGS (2)
  1. KIOVIG [Suspect]
     Active Substance: HUMAN IMMUNOGLOBULIN G
     Route: 042
     Dates: end: 20140829
  2. KIOVIG [Suspect]
     Active Substance: HUMAN IMMUNOGLOBULIN G
     Indication: GUILLAIN-BARRE SYNDROME
     Route: 042
     Dates: start: 20140828

REACTIONS (6)
  - Headache [Recovered/Resolved]
  - Feeling cold [Recovered/Resolved]
  - Joint stiffness [Recovered/Resolved]
  - Tachycardia [Recovered/Resolved]
  - Eye pain [Recovered/Resolved]
  - Pain [Recovered/Resolved]
